FAERS Safety Report 8124086-6 (Version None)
Quarter: 2012Q1

REPORT INFORMATION
  Report Type: 
  Country: None (occurrence: None)
  Receive Date: 20120209
  Receipt Date: 20120203
  Transmission Date: 20120608
  Serious: No
  Sender: FDA-Public Use
  Company Number: US-PFIZER INC-2012031537

PATIENT

DRUGS (3)
  1. LATANOPROST [Suspect]
     Dosage: UNK
  2. SYNTHROID [Concomitant]
     Indication: THYROID DISORDER
     Dosage: UNK
  3. GLUCOTROL [Concomitant]
     Dosage: UNK

REACTIONS (1)
  - EYE IRRITATION [None]
